FAERS Safety Report 10554474 (Version 1)
Quarter: 2014Q4

REPORT INFORMATION
  Report Type: Spontaneous
  Country: US (occurrence: US)
  Receive Date: 20141030
  Receipt Date: 20141030
  Transmission Date: 20150529
  Serious: Yes (Other)
  Sender: FDA-Public Use
  Company Number: US-SHIRE-US201407316

PATIENT
  Age: 17 Year
  Sex: Female

DRUGS (3)
  1. VYVANSE [Suspect]
     Active Substance: LISDEXAMFETAMINE DIMESYLATE
     Indication: BULIMIA NERVOSA
     Dosage: UNK, 1X/DAY:QD (MAYBE 25-30MG)
     Route: 048
     Dates: start: 201311, end: 2014
  2. VYVANSE [Suspect]
     Active Substance: LISDEXAMFETAMINE DIMESYLATE
     Indication: BINGE EATING
     Dosage: UNK, UNKNOWN
     Route: 048
     Dates: start: 201405, end: 20141016
  3. VYVANSE [Suspect]
     Active Substance: LISDEXAMFETAMINE DIMESYLATE
     Indication: PURGING

REACTIONS (9)
  - Dehydration [Unknown]
  - Performance status decreased [Not Recovered/Not Resolved]
  - Diarrhoea [Recovered/Resolved]
  - Urinary tract infection [Unknown]
  - Disturbance in social behaviour [Not Recovered/Not Resolved]
  - Product use issue [Recovered/Resolved]
  - Ill-defined disorder [Recovered/Resolved]
  - Vomiting [Recovered/Resolved]
  - Food poisoning [Unknown]

NARRATIVE: CASE EVENT DATE: 201311
